FAERS Safety Report 10071853 (Version 2)
Quarter: 2014Q2

REPORT INFORMATION
  Report Type: Spontaneous
  Country: US (occurrence: US)
  Receive Date: 20140411
  Receipt Date: 20140530
  Transmission Date: 20141212
  Serious: Yes (Hospitalization, Other)
  Sender: FDA-Public Use
  Company Number: US-BIOGENIDEC-2014BI033578

PATIENT
  Age: 56 Year
  Sex: Female
  Weight: 63 kg

DRUGS (8)
  1. TECFIDERA [Suspect]
     Indication: RELAPSING-REMITTING MULTIPLE SCLEROSIS
     Route: 048
     Dates: start: 201306
  2. TECFIDERA [Suspect]
     Indication: RELAPSING-REMITTING MULTIPLE SCLEROSIS
     Route: 048
     Dates: start: 201306
  3. TECFIDERA [Suspect]
     Indication: RELAPSING-REMITTING MULTIPLE SCLEROSIS
     Dates: end: 201401
  4. TECFIDERA [Suspect]
     Indication: RELAPSING-REMITTING MULTIPLE SCLEROSIS
  5. BOTOX [Concomitant]
     Indication: PARAPARESIS
  6. MACRODANTIN [Concomitant]
     Indication: URINARY TRACT INFECTION
  7. ACTHAR GEL [Concomitant]
     Indication: OPTIC NEURITIS
  8. ACTHAR GEL [Concomitant]
     Indication: OPTIC NEURITIS

REACTIONS (2)
  - Epilepsy [Recovered/Resolved]
  - Meningioma [Unknown]
